FAERS Safety Report 4459817-X (Version None)
Quarter: 2004Q3

REPORT INFORMATION
  Report Type: 
  Country: None (occurrence: None)
  Receive Date: 20040928
  Receipt Date: 20040107
  Transmission Date: 20050211
  Serious: No
  Sender: FDA-Public Use
  Company Number: US-BRISTOL-MYERS SQUIBB COMPANY-12473187

PATIENT
  Age: 77 Year
  Sex: Female
  Weight: 63 kg

DRUGS (1)
  1. TRIMOX [Suspect]
     Indication: PNEUMONIA
     Route: 048
     Dates: start: 20031224, end: 20040103

REACTIONS (3)
  - BURNING SENSATION [None]
  - HAEMORRHAGE SUBCUTANEOUS [None]
  - URTICARIA [None]
